FAERS Safety Report 7433973-3 (Version None)
Quarter: 2011Q2

REPORT INFORMATION
  Report Type: 
  Country: None (occurrence: None)
  Receive Date: 20110425
  Receipt Date: 20110415
  Transmission Date: 20111010
  Serious: Yes (Other)
  Sender: FDA-Public Use
  Company Number: US-JNJFOC-20110408256

PATIENT
  Sex: Male
  Weight: 79.83 kg

DRUGS (3)
  1. LEVAQUIN [Suspect]
     Route: 048
  2. METRONIDAZOLE [Concomitant]
     Indication: DIVERTICULITIS
     Route: 048
  3. LEVAQUIN [Suspect]
     Indication: DIVERTICULITIS
     Route: 042

REACTIONS (1)
  - DYSSTASIA [None]
